FAERS Safety Report 8908136 (Version 1)
Quarter: 2012Q4

REPORT INFORMATION
  Report Type: 
  Country: US (occurrence: US)
  Receive Date: 20121113
  Receipt Date: 20121113
  Transmission Date: 20130627
  Serious: No
  Sender: FDA-Public Use
  Company Number: US-PFIZER INC-2012283028

PATIENT
  Age: 61 Year
  Sex: Female
  Weight: 63.49 kg

DRUGS (3)
  1. LYRICA [Suspect]
     Indication: NERVE PAIN
     Dosage: 100 mg, 3x/day
     Route: 048
     Dates: start: 200909, end: 2011
  2. LYRICA [Suspect]
     Indication: PERIPHERAL NERVE INJURY
  3. OXYCONTIN [Concomitant]
     Dosage: 40 mg, 3x/day

REACTIONS (3)
  - Irritability [Recovered/Resolved]
  - Feeling abnormal [Recovered/Resolved]
  - Decreased appetite [Recovered/Resolved]
